FAERS Safety Report 9042463 (Version 1)
Quarter: 2013Q1

REPORT INFORMATION
  Report Type: Report from Study
  Country: US (occurrence: US)
  Receive Date: 20130129
  Receipt Date: 20130129
  Transmission Date: 20140127
  Serious: No
  Sender: FDA-Public Use
  Company Number: US-ABBOTT-12P-163-0909108-00

PATIENT
  Age: 43 Year
  Sex: Female

DRUGS (2)
  1. HUMIRA 40 MG/0.8 ML PEN [Suspect]
     Indication: COLITIS ULCERATIVE
     Route: 058
     Dates: start: 200909
  2. ASACOL [Concomitant]
     Indication: COLITIS
     Dosage: 400 MG X 4 PILLS DAILY

REACTIONS (7)
  - Ingrowing nail [Not Recovered/Not Resolved]
  - Feeling cold [Unknown]
  - Pain in extremity [Unknown]
  - Erythema [Unknown]
  - Erythema [Unknown]
  - Feeling hot [Unknown]
  - Paraesthesia [Unknown]
